FAERS Safety Report 17274057 (Version 1)
Quarter: 2020Q1

REPORT INFORMATION
  Report Type: Spontaneous
  Country: US (occurrence: US)
  Receive Date: 20191226
  Receipt Date: 20191226
  Transmission Date: 20200409
  Serious: Yes (Death)
  Sender: FDA-Public Use
  Company Number: None

PATIENT
  Age: 63 Year
  Sex: Female

DRUGS (13)
  1. IBRANCE [Suspect]
     Active Substance: PALBOCICLIB
     Indication: BREAST CANCER FEMALE
     Route: 048
     Dates: start: 201809, end: 20191218
  2. LEVETIRACETA [Concomitant]
  3. TRANSDERM-SC [Concomitant]
  4. SYMBICORT [Concomitant]
     Active Substance: BUDESONIDE\FORMOTEROL FUMARATE DIHYDRATE
  5. FASLODEX [Concomitant]
     Active Substance: FULVESTRANT
  6. FOLIC ACID. [Concomitant]
     Active Substance: FOLIC ACID
  7. PROMETHEFAN [Concomitant]
  8. AOMETA [Concomitant]
  9. FAMOTIDINE. [Concomitant]
     Active Substance: FAMOTIDINE
  10. ALBUTERNOL [Concomitant]
  11. AZITHROMYCIN ANHYDROUS. [Concomitant]
     Active Substance: AZITHROMYCIN ANHYDROUS
  12. METHYLPRED [Concomitant]
     Active Substance: METHYLPREDNISOLONE
  13. PROCHLORPER [Concomitant]

REACTIONS (1)
  - Death [None]

NARRATIVE: CASE EVENT DATE: 20191218
